FAERS Safety Report 20196490 (Version 1)
Quarter: 2021Q4

REPORT INFORMATION
  Report Type: Report from Study
  Country: JP (occurrence: JP)
  Receive Date: 20211216
  Receipt Date: 20211216
  Transmission Date: 20220303
  Serious: Yes (Hospitalization, Other)
  Sender: FDA-Public Use
  Company Number: JP-SA-2021SA413604

PATIENT
  Age: 67 Year
  Sex: Male
  Weight: 63 kg

DRUGS (4)
  1. CABAZITAXEL [Suspect]
     Active Substance: CABAZITAXEL
     Indication: Hormone-refractory prostate cancer
     Dosage: 400 MG, Q3W
     Route: 041
     Dates: start: 20160317, end: 20160714
  2. PEGFILGRASTIM [Concomitant]
     Active Substance: PEGFILGRASTIM
     Indication: Prophylaxis
     Dosage: 3.6 MG, Q3W
     Route: 058
     Dates: start: 20160317, end: 20160714
  3. PREDONINE [Concomitant]
     Active Substance: PREDNISOLONE
     Indication: Prostate cancer stage IV
     Dosage: 5 MG, BID
     Route: 048
     Dates: start: 20150925, end: 20161022
  4. GOSERELIN ACETATE [Concomitant]
     Active Substance: GOSERELIN ACETATE
     Indication: Prostate cancer stage IV
     Dosage: 10.8 MG, Q12W
     Route: 058
     Dates: start: 20131205, end: 20160812

REACTIONS (3)
  - Febrile neutropenia [Recovered/Resolved]
  - Pyrexia [Recovered/Resolved]
  - Pyelonephritis [Recovered/Resolved]

NARRATIVE: CASE EVENT DATE: 20160709
